FAERS Safety Report 9649657 (Version 2)
Quarter: 2013Q4

REPORT INFORMATION
  Report Type: Report from Study
  Country: US (occurrence: US)
  Receive Date: 20131028
  Receipt Date: 20131129
  Transmission Date: 20140711
  Serious: Yes (Death, Hospitalization)
  Sender: FDA-Public Use
  Company Number: US-ACTELION-A-NJ2013-90143

PATIENT
  Age: 60 Year
  Sex: Female

DRUGS (2)
  1. VELETRI [Suspect]
     Indication: COR PULMONALE CHRONIC
     Dosage: 8 UNK, UNK
     Route: 042
     Dates: start: 20130509, end: 20130910
  2. SILDENAFIL [Concomitant]

REACTIONS (3)
  - Death [Fatal]
  - Hepatic failure [Unknown]
  - Malaise [Unknown]
